FAERS Safety Report 24631592 (Version 1)
Quarter: 2024Q4

REPORT INFORMATION
  Report Type: Spontaneous
  Country: FR (occurrence: FR)
  Receive Date: 20241118
  Receipt Date: 20241118
  Transmission Date: 20250115
  Serious: Yes (Death)
  Sender: NOVARTIS
  Company Number: None

PATIENT
  Age: 70 Year
  Sex: Female
  Weight: 50 kg

DRUGS (2)
  1. NEORAL [Suspect]
     Active Substance: CYCLOSPORINE
     Indication: Renal transplant
     Dosage: 200 MG
     Route: 065
     Dates: start: 20110928, end: 20120415
  2. PLAQUENIL [Suspect]
     Active Substance: HYDROXYCHLOROQUINE SULFATE
     Indication: Renal transplant
     Dosage: UNK
     Route: 065
     Dates: start: 19880101, end: 20120822

REACTIONS (2)
  - Hypertrophic cardiomyopathy [Fatal]
  - Myocardial fibrosis [Fatal]

NARRATIVE: CASE EVENT DATE: 20120115
